FAERS Safety Report 24061276 (Version 1)
Quarter: 2024Q3

REPORT INFORMATION
  Report Type: Spontaneous
  Country: AE (occurrence: AE)
  Receive Date: 20240708
  Receipt Date: 20240708
  Transmission Date: 20241017
  Serious: Yes (Other)
  Sender: DAIICHI
  Company Number: AE-AstraZeneca-2024A151634

PATIENT
  Sex: Female

DRUGS (1)
  1. TRASTUZUMAB DERUXTECAN [Suspect]
     Active Substance: TRASTUZUMAB DERUXTECAN
     Indication: HER2 positive breast cancer
     Dosage: UNK
     Route: 042

REACTIONS (2)
  - Intracranial pressure increased [Recovering/Resolving]
  - Nausea [Recovering/Resolving]
